FAERS Safety Report 5709040-3 (Version None)
Quarter: 2008Q2

REPORT INFORMATION
  Report Type: 
  Country: None (occurrence: None)
  Receive Date: 20080416
  Receipt Date: 20080416
  Transmission Date: 20081010
  Serious: Yes (Hospitalization)
  Sender: FDA-Public Use
  Company Number: None

PATIENT
  Age: 79 Year

DRUGS (8)
  1. IBUPROFEN [Suspect]
     Indication: PAIN
     Dosage: 400MG BID PO
     Route: 048
  2. ASPIRIN [Suspect]
     Indication: CORONARY ARTERY DISEASE
     Dosage: 81  DAILY  PO   (DURATION: CHRONIC)
     Route: 048
  3. TYLENOL PM [Concomitant]
  4. MIDODRINE [Concomitant]
  5. ASPIRIN [Concomitant]
  6. PROSCAR [Concomitant]
  7. LOPRESSOR [Concomitant]
  8. ALEVE [Concomitant]

REACTIONS (3)
  - GASTRIC ULCER [None]
  - RECTAL HAEMORRHAGE [None]
  - SYNCOPE [None]
